FAERS Safety Report 7334895-9 (Version None)
Quarter: 2011Q1

REPORT INFORMATION
  Report Type: 
  Country: None (occurrence: None)
  Receive Date: 20110307
  Receipt Date: 20110228
  Transmission Date: 20110831
  Serious: Yes (Other)
  Sender: FDA-Public Use
  Company Number: US-ROCHE-719290

PATIENT
  Sex: Male
  Weight: 120.2 kg

DRUGS (1)
  1. ACCUTANE [Suspect]
     Dosage: ? MG PER KG DAILY.
     Route: 065
     Dates: start: 19860301, end: 19860701

REACTIONS (4)
  - INFLAMMATORY BOWEL DISEASE [None]
  - DIVERTICULUM INTESTINAL [None]
  - ANAL FISSURE [None]
  - CROHN'S DISEASE [None]
